FAERS Safety Report 26160114 (Version 1)
Quarter: 2025Q4

REPORT INFORMATION
  Report Type: Spontaneous
  Country: US (occurrence: None)
  Receive Date: 20251216
  Receipt Date: 20251216
  Transmission Date: 20260118
  Serious: Yes (Hospitalization)
  Sender: CHIESI
  Company Number: US-CHIESI-2025CHF08858

PATIENT
  Age: 0 Year
  Sex: Male

DRUGS (5)
  1. REVCOVI [Suspect]
     Active Substance: ELAPEGADEMASE-LVLR
     Indication: Combined immunodeficiency
     Dosage: 2 MILLIGRAM, QW
     Route: 065
     Dates: start: 20240803
  2. REVCOVI [Suspect]
     Active Substance: ELAPEGADEMASE-LVLR
     Indication: Failure to thrive
  3. REVCOVI [Suspect]
     Active Substance: ELAPEGADEMASE-LVLR
     Indication: Off label use
  4. FLUCONAZOLE [Concomitant]
     Active Substance: FLUCONAZOLE
     Indication: Product used for unknown indication
     Dosage: UNK
  5. SULFAMETHOXAZOLE AND TRIMETHOPRIM [Concomitant]
     Active Substance: SULFAMETHOXAZOLE\TRIMETHOPRIM
     Indication: Product used for unknown indication
     Dosage: UNK

REACTIONS (2)
  - Norovirus infection [Recovered/Resolved]
  - Off label use [Unknown]

NARRATIVE: CASE EVENT DATE: 20240803
